FAERS Safety Report 5462996-9 (Version None)
Quarter: 2007Q3

REPORT INFORMATION
  Report Type: 
  Country: None (occurrence: None)
  Receive Date: 20070918
  Receipt Date: 20070918
  Transmission Date: 20080115
  Serious: No
  Sender: FDA-Public Use
  Company Number: None

PATIENT
  Age: 70 Year
  Sex: Female
  Weight: 68.0396 kg

DRUGS (1)
  1. PROMETHAZINE [Suspect]
     Indication: BRONCHITIS
     Dosage: 1 TSP 3 PER DAY BUCCAL
     Route: 002
     Dates: start: 20001001, end: 20001004

REACTIONS (5)
  - AGITATION [None]
  - BALANCE DISORDER [None]
  - DIZZINESS [None]
  - DRY MOUTH [None]
  - DYSURIA [None]
